FAERS Safety Report 17530286 (Version 1)
Quarter: 2020Q1

REPORT INFORMATION
  Report Type: Spontaneous
  Country: CH (occurrence: CH)
  Receive Date: 20200312
  Receipt Date: 20200312
  Transmission Date: 20200409
  Serious: Yes (Hospitalization, Other)
  Sender: FDA-Public Use
  Company Number: CH-ASTRAZENECA-2020SE33384

PATIENT
  Age: 17 Year
  Sex: Female

DRUGS (6)
  1. SEROQUEL [Suspect]
     Active Substance: QUETIAPINE FUMARATE
     Dosage: 150.0MG UNKNOWN
     Route: 048
     Dates: start: 202001, end: 20200220
  2. SEROQUEL [Suspect]
     Active Substance: QUETIAPINE FUMARATE
     Dosage: 50.0MG UNKNOWN
     Route: 048
     Dates: start: 20200219, end: 20200221
  3. ABILIFY [Interacting]
     Active Substance: ARIPIPRAZOLE
     Route: 065
     Dates: start: 2016, end: 20200116
  4. SEROQUEL [Suspect]
     Active Substance: QUETIAPINE FUMARATE
     Dosage: 150.0MG UNKNOWN
     Route: 048
     Dates: start: 20200221
  5. SEROQUEL [Suspect]
     Active Substance: QUETIAPINE FUMARATE
     Dosage: 50.0MG UNKNOWN
     Route: 048
     Dates: start: 20200117, end: 202001
  6. FLUCTINE [Interacting]
     Active Substance: FLUOXETINE HYDROCHLORIDE
     Dosage: 40.0MG UNKNOWN
     Route: 048

REACTIONS (3)
  - Dyskinesia [Not Recovered/Not Resolved]
  - Drug interaction [Recovered/Resolved]
  - Withdrawal syndrome [Not Recovered/Not Resolved]

NARRATIVE: CASE EVENT DATE: 2016
